FAERS Safety Report 9297177 (Version 2)
Quarter: 2013Q2

REPORT INFORMATION
  Report Type: Report from Study
  Country: CA (occurrence: CA)
  Receive Date: 20130520
  Receipt Date: 20130521
  Transmission Date: 20140414
  Serious: Yes (Other)
  Sender: FDA-Public Use
  Company Number: CA-ROCHE-1177240

PATIENT
  Age: 66 Year
  Sex: Male

DRUGS (4)
  1. ZELBORAF [Suspect]
     Indication: METASTATIC MALIGNANT MELANOMA
     Route: 048
     Dates: start: 20121208
  2. ZELBORAF [Suspect]
     Route: 048
  3. ZELBORAF [Suspect]
     Route: 048
     Dates: start: 201301, end: 20130513
  4. INTERFERON ALFA [Concomitant]
     Route: 065
     Dates: start: 2006

REACTIONS (7)
  - Rash [Recovered/Resolved]
  - Lymphoedema [Unknown]
  - Paraesthesia [Not Recovered/Not Resolved]
  - Arthralgia [Recovered/Resolved]
  - Dysgeusia [Not Recovered/Not Resolved]
  - Decreased appetite [Not Recovered/Not Resolved]
  - Acne [Not Recovered/Not Resolved]
